FAERS Safety Report 4748258-3 (Version None)
Quarter: 2005Q3

REPORT INFORMATION
  Report Type: 
  Country: None (occurrence: None)
  Receive Date: 20050818
  Receipt Date: 20050810
  Transmission Date: 20060218
  Serious: Yes (Hospitalization)
  Sender: FDA-Public Use
  Company Number: PT-ABBOTT-05P-130-0308138-00

PATIENT
  Sex: Male

DRUGS (1)
  1. KLACID SUSPENSION [Suspect]
     Indication: TONSILLITIS
     Route: 048
     Dates: start: 20050620

REACTIONS (2)
  - PLATELET COUNT DECREASED [None]
  - THROMBOCYTOPENIC PURPURA [None]
